FAERS Safety Report 14534194 (Version 1)
Quarter: 2018Q1

REPORT INFORMATION
  Report Type: Spontaneous
  Country: US (occurrence: US)
  Receive Date: 20180214
  Receipt Date: 20180214
  Transmission Date: 20180509
  Serious: No
  Sender: FDA-Public Use
  Company Number: None

PATIENT
  Sex: Female

DRUGS (1)
  1. STIVARGA [Suspect]
     Active Substance: REGORAFENIB
     Indication: BONE CANCER
     Dosage: DAILU FOR 21 DAYS OF 28 DSY CYCLE
     Route: 048
     Dates: start: 20180125

REACTIONS (3)
  - Pain [None]
  - Dysphonia [None]
  - Hyperhidrosis [None]
